FAERS Safety Report 7034814-9 (Version None)
Quarter: 2010Q4

REPORT INFORMATION
  Report Type: 
  Country: None (occurrence: None)
  Receive Date: 20101008
  Receipt Date: 20100929
  Transmission Date: 20110411
  Serious: Yes (Hospitalization)
  Sender: FDA-Public Use
  Company Number: JP-ASTRAZENECA-2010SE46816

PATIENT
  Age: 69 Year
  Sex: Female

DRUGS (8)
  1. CANDESARTAN CILEXETIL AND HYDROCHLOROTHIAZIDE [Suspect]
     Indication: HYPERTENSION
     Dosage: 1 DF DAILY
     Route: 048
     Dates: start: 20100310, end: 20100827
  2. PLAVIX [Suspect]
     Route: 048
     Dates: start: 20100129, end: 20100827
  3. VESICARE [Concomitant]
     Route: 048
     Dates: start: 20100129
  4. BUP-4 [Concomitant]
     Route: 048
     Dates: start: 20100129
  5. PARIET [Concomitant]
     Route: 048
     Dates: start: 20100129
  6. URSO 250 [Concomitant]
     Route: 048
     Dates: start: 20100129
  7. AZELASTINE HCL [Concomitant]
     Route: 048
     Dates: start: 20100427
  8. LENDORMIN [Concomitant]
     Route: 048
     Dates: start: 20100129

REACTIONS (2)
  - CYSTITIS HAEMORRHAGIC [None]
  - HYPONATRAEMIA [None]
